FAERS Safety Report 6714175-2 (Version None)
Quarter: 2010Q2

REPORT INFORMATION
  Report Type: 
  Country: None (occurrence: None)
  Receive Date: 20100506
  Receipt Date: 20100430
  Transmission Date: 20101027
  Serious: Yes (Death, Other)
  Sender: FDA-Public Use
  Company Number: CN-ROCHE-692385

PATIENT
  Age: 53 Year
  Sex: Male

DRUGS (2)
  1. XELODA [Suspect]
     Indication: RECTAL CANCER
     Dosage: TOTAL DURATION AS 8 THERAPY CYCLES.
     Route: 048
  2. OXALIPLATIN [Concomitant]
     Indication: RECTAL CANCER

REACTIONS (3)
  - MULTI-ORGAN FAILURE [None]
  - RECTAL CANCER METASTATIC [None]
  - RECURRENT CANCER [None]
